FAERS Safety Report 5093095-6 (Version None)
Quarter: 2006Q3

REPORT INFORMATION
  Report Type: 
  Country: None (occurrence: None)
  Receive Date: 20060828
  Receipt Date: 20060811
  Transmission Date: 20061208
  Serious: Yes (Death, Life-Threatening, Hospitalization)
  Sender: FDA-Public Use
  Company Number: PAR_0747_2006

PATIENT
  Age: 36 Year
  Sex: Female

DRUGS (6)
  1. HYDRALAZINE HCI [Suspect]
     Indication: HYPERTENSION
     Dosage: 100 MG QDAY PO
     Route: 048
  2. ATENOLOL [Concomitant]
  3. CLONIDINE [Concomitant]
  4. NIFEDIPINE [Concomitant]
  5. FOSINOPRIL SODIUM [Concomitant]
  6. LEVOFLOXACIN [Concomitant]

REACTIONS (26)
  - ALANINE AMINOTRANSFERASE INCREASED [None]
  - ASPARTATE AMINOTRANSFERASE INCREASED [None]
  - BLOOD CREATINE PHOSPHOKINASE INCREASED [None]
  - BLOOD LACTATE DEHYDROGENASE INCREASED [None]
  - CARDIOMEGALY [None]
  - COMPUTERISED TOMOGRAM ABNORMAL [None]
  - CONNECTIVE TISSUE DISORDER [None]
  - DELIRIUM [None]
  - DIFFUSE ALVEOLAR DAMAGE [None]
  - DYSPNOEA [None]
  - HEART RATE INCREASED [None]
  - HEART SOUNDS ABNORMAL [None]
  - HYPOTENSION [None]
  - HYPOXIA [None]
  - INFECTION [None]
  - LUPUS PNEUMONITIS [None]
  - LYMPHADENOPATHY [None]
  - LYMPHOMA [None]
  - PERICARDIAL EFFUSION [None]
  - PERICARDITIS [None]
  - PLEURAL EFFUSION [None]
  - PYREXIA [None]
  - RED BLOOD CELL SEDIMENTATION RATE INCREASED [None]
  - RESPIRATORY ALKALOSIS [None]
  - RESPIRATORY RATE INCREASED [None]
  - UPPER RESPIRATORY TRACT INFECTION [None]
